FAERS Safety Report 8583474-4 (Version None)
Quarter: 2012Q3

REPORT INFORMATION
  Report Type: 
  Country: None (occurrence: None)
  Receive Date: 20120809
  Receipt Date: 20120803
  Transmission Date: 20120928
  Serious: Yes (Other)
  Sender: FDA-Public Use
  Company Number: PHHY2012GB067390

PATIENT
  Age: 38 Year
  Sex: Male

DRUGS (3)
  1. CITALOPRAM HYDROBROMIDE [Suspect]
     Dosage: 60 MG, DAILY DOSE
     Route: 048
     Dates: end: 20120401
  2. CITALOPRAM HYDROBROMIDE [Suspect]
     Dosage: 80 MG, QD
     Route: 048
  3. SSRI [Concomitant]
     Indication: ANXIETY

REACTIONS (6)
  - MENTAL IMPAIRMENT [None]
  - ANXIETY [None]
  - ACTIVITIES OF DAILY LIVING IMPAIRED [None]
  - OVERDOSE [None]
  - SUICIDAL IDEATION [None]
  - WITHDRAWAL SYNDROME [None]
